FAERS Safety Report 9052612 (Version 1)
Quarter: 2013Q1

REPORT INFORMATION
  Report Type: Spontaneous
  Country: GR (occurrence: GR)
  Receive Date: 20130207
  Receipt Date: 20130207
  Transmission Date: 20140127
  Serious: Yes (Other)
  Sender: FDA-Public Use
  Company Number: GR-PFIZER INC-2013046996

PATIENT
  Age: 64 Year
  Sex: Female

DRUGS (4)
  1. LIPITOR [Suspect]
     Dosage: 20 MG, UNK
     Dates: start: 2011
  2. COAPROVEL [Concomitant]
     Dosage: UNK
  3. MEDROL [Concomitant]
     Dosage: 4 MG, UNK
  4. PENRAZOL [Concomitant]
     Dosage: UNK

REACTIONS (1)
  - Amnesia [Unknown]
